FAERS Safety Report 7605579-4 (Version None)
Quarter: 2011Q3

REPORT INFORMATION
  Report Type: 
  Country: None (occurrence: None)
  Receive Date: 20110705
  Receipt Date: 20110617
  Transmission Date: 20111222
  Serious: Yes (Other)
  Sender: FDA-Public Use
  Company Number: 2011MA007722

PATIENT
  Age: 28 Year
  Sex: Female

DRUGS (1)
  1. PROPYLTHIOURACIL TAB [Suspect]
     Indication: BASEDOW'S DISEASE

REACTIONS (5)
  - OEDEMA PERIPHERAL [None]
  - ARTHRALGIA [None]
  - ANTINEUTROPHIL CYTOPLASMIC ANTIBODY [None]
  - VASCULITIS [None]
  - HYPERGAMMAGLOBULINAEMIA [None]
